FAERS Safety Report 10669468 (Version 1)
Quarter: 2014Q4

REPORT INFORMATION
  Report Type: Spontaneous
  Country: US (occurrence: US)
  Receive Date: 20141222
  Receipt Date: 20141222
  Transmission Date: 20150529
  Serious: Yes (Other)
  Sender: FDA-Public Use
  Company Number: US-SA-2014SA150301

PATIENT
  Age: 62 Year
  Sex: Female

DRUGS (5)
  1. PROVIGIL [Concomitant]
     Active Substance: MODAFINIL
  2. MANGANESE CHLORIDE/CUPRIC CARBONATE, BASIC/THIAMINE/CALCIUM GLUCONATE/ASCORBIC ACID/ERGOCALCIFEROL/P [Concomitant]
  3. VAGIFEM [Concomitant]
     Active Substance: ESTRADIOL
  4. AUBAGIO [Suspect]
     Active Substance: TERIFLUNOMIDE
     Indication: MULTIPLE SCLEROSIS
     Route: 048
  5. ZANTAC [Concomitant]
     Active Substance: RANITIDINE HYDROCHLORIDE

REACTIONS (1)
  - Multiple sclerosis relapse [Unknown]

NARRATIVE: CASE EVENT DATE: 20141022
